FAERS Safety Report 10075968 (Version 3)
Quarter: 2014Q2

REPORT INFORMATION
  Report Type: Spontaneous
  Country: US (occurrence: DE)
  Receive Date: 20140414
  Receipt Date: 20140515
  Transmission Date: 20141212
  Serious: Yes (Life-Threatening)
  Sender: FDA-Public Use
  Company Number: DE-FRI-1000066361

PATIENT
  Age: 61 Year
  Sex: Female

DRUGS (7)
  1. ASENAPINE [Suspect]
     Indication: SCHIZOPHRENIA
     Dosage: 20 MG
     Route: 060
     Dates: start: 20131217
  2. ASENAPINE [Suspect]
     Indication: SCHIZOPHRENIA
     Dosage: 10 MG
     Route: 048
  3. ORFIRIL [Concomitant]
     Indication: MOOD ALTERED
     Dosage: 1200 MG
     Dates: start: 20131217
  4. METOPROLOL [Concomitant]
     Indication: HYPERTENSION
     Dosage: 23.75 MG
     Dates: start: 20131217
  5. TAVOR [Concomitant]
     Indication: RESTLESSNESS
     Dosage: 1.5 MG
     Dates: start: 20131217
  6. ACC LONG [Concomitant]
     Indication: COUGH
     Dosage: 600 MG
     Dates: start: 20131217
  7. ZYPREXA [Concomitant]

REACTIONS (10)
  - Fall [Recovering/Resolving]
  - Restlessness [Recovering/Resolving]
  - Extrapyramidal disorder [Recovering/Resolving]
  - Tardive dyskinesia [Recovering/Resolving]
  - Anxiety [Recovering/Resolving]
  - Dysarthria [Recovering/Resolving]
  - Dysphagia [Recovering/Resolving]
  - Disorientation [Recovering/Resolving]
  - Akathisia [Recovering/Resolving]
  - Off label use [Not Recovered/Not Resolved]
